FAERS Safety Report 9185328 (Version 1)
Quarter: 2013Q1

REPORT INFORMATION
  Report Type: Spontaneous
  Country: ZA (occurrence: ZA)
  Receive Date: 20130325
  Receipt Date: 20130325
  Transmission Date: 20140127
  Serious: Yes (Other)
  Sender: FDA-Public Use
  Company Number: ZA-JNJFOC-20130308887

PATIENT
  Age: 16 Year
  Sex: Female
  Weight: 62 kg

DRUGS (7)
  1. REVELLEX [Suspect]
     Indication: JUVENILE IDIOPATHIC ARTHRITIS
     Route: 042
     Dates: start: 20120625
  2. REVELLEX [Suspect]
     Indication: JUVENILE IDIOPATHIC ARTHRITIS
     Route: 042
     Dates: start: 20130211, end: 20130211
  3. CYMBALTA [Concomitant]
     Indication: ANXIETY
     Route: 048
  4. CYMBALTA [Concomitant]
     Indication: DEPRESSION
     Route: 048
  5. METHOTREXATE [Concomitant]
     Route: 048
  6. URBANOL [Concomitant]
     Indication: SLEEP DISORDER THERAPY
     Dosage: WHEN NECESSARY TO ASSIST WITH SLEEP
     Route: 048
  7. VITAMIN-SUPPLEMENTS [Concomitant]
     Route: 065

REACTIONS (1)
  - Infectious mononucleosis [Not Recovered/Not Resolved]
